FAERS Safety Report 4642310-9 (Version None)
Quarter: 2005Q2

REPORT INFORMATION
  Report Type: 
  Country: None (occurrence: None)
  Receive Date: 20050420
  Receipt Date: 20050407
  Transmission Date: 20051028
  Serious: Yes (Hospitalization)
  Sender: FDA-Public Use
  Company Number: 2005CG00638

PATIENT
  Age: 78 Year
  Sex: Male

DRUGS (1)
  1. XYLOCAINE [Suspect]
     Indication: LOCAL ANAESTHESIA
     Dates: start: 20050218, end: 20050218

REACTIONS (4)
  - DESCEMET'S MEMBRANE DISORDER [None]
  - ENDOPHTHALMITIS [None]
  - HYPOPYON [None]
  - OFF LABEL USE [None]
